FAERS Safety Report 9390746 (Version 1)
Quarter: 2013Q3

REPORT INFORMATION
  Report Type: Spontaneous
  Country: US (occurrence: None)
  Receive Date: 20130705
  Receipt Date: 20130705
  Transmission Date: 20140515
  Serious: No
  Sender: FDA-Public Use
  Company Number: None

PATIENT
  Age: 58 Year
  Sex: Male
  Weight: 87.3 kg

DRUGS (2)
  1. RUXOLITINIB [Suspect]
     Route: 048
     Dates: start: 20130605
  2. DANAZOL [Suspect]
     Route: 048

REACTIONS (1)
  - Haemoglobin decreased [None]
